FAERS Safety Report 12876925 (Version 1)
Quarter: 2016Q4

REPORT INFORMATION
  Report Type: Spontaneous
  Country: US (occurrence: US)
  Receive Date: 20161024
  Receipt Date: 20161024
  Transmission Date: 20170207
  Serious: No
  Sender: FDA-Public Use
  Company Number: US-GLAXOSMITHKLINE-US2016155130

PATIENT
  Age: 69 Year
  Sex: Female

DRUGS (2)
  1. FLOVENT DISKUS [Suspect]
     Active Substance: FLUTICASONE PROPIONATE
     Indication: ASTHMA
     Dosage: 1 PUFF(S), QD
     Route: 055
     Dates: start: 201606
  2. FLOVENT DISKUS [Suspect]
     Active Substance: FLUTICASONE PROPIONATE
     Indication: BRONCHIECTASIS

REACTIONS (8)
  - Toothache [Unknown]
  - Tooth infection [Recovered/Resolved]
  - Gingival pain [Recovered/Resolved]
  - Tooth extraction [Recovered/Resolved]
  - Dental caries [Not Recovered/Not Resolved]
  - Dysphonia [Not Recovered/Not Resolved]
  - Underdose [Unknown]
  - Endodontic procedure [Not Recovered/Not Resolved]

NARRATIVE: CASE EVENT DATE: 201606
